FAERS Safety Report 16308176 (Version 1)
Quarter: 2019Q2

REPORT INFORMATION
  Report Type: Spontaneous
  Country: FR (occurrence: FR)
  Receive Date: 20190514
  Receipt Date: 20190514
  Transmission Date: 20190711
  Serious: Yes (Life-Threatening, Other)
  Sender: FDA-Public Use
  Company Number: FR-AUROBINDO-AUR-APL-2019-025343

PATIENT

DRUGS (3)
  1. FLECAINIDE [Suspect]
     Active Substance: FLECAINIDE
     Indication: ARRHYTHMIA SUPRAVENTRICULAR
     Dosage: 150 KILO-INTERNATIONAL UNIT, DAILY
     Route: 048
     Dates: end: 20190410
  2. ELIQUIS [Suspect]
     Active Substance: APIXABAN
     Indication: ARRHYTHMIA SUPRAVENTRICULAR
     Dosage: 5 MILLIGRAM, DAILY
     Route: 048
     Dates: start: 2018, end: 20190410
  3. ACICLOVIR [Concomitant]
     Active Substance: ACYCLOVIR
     Indication: OPHTHALMIC HERPES ZOSTER
     Dosage: UNK
     Route: 048
     Dates: start: 201903, end: 20190410

REACTIONS (2)
  - Interstitial lung disease [Recovering/Resolving]
  - Acute respiratory distress syndrome [Recovered/Resolved]

NARRATIVE: CASE EVENT DATE: 201904
